FAERS Safety Report 8836712 (Version 1)
Quarter: 2012Q4

REPORT INFORMATION
  Report Type: Spontaneous
  Country: US (occurrence: None)
  Receive Date: 20121011
  Receipt Date: 20121011
  Transmission Date: 20130627
  Serious: Yes (Life-Threatening)
  Sender: FDA-Public Use
  Company Number: None

PATIENT
  Sex: Female
  Weight: 81.8 kg

DRUGS (1)
  1. MORPHINE [Suspect]
     Indication: GASTRIC DISORDER
     Route: 042
     Dates: start: 2004, end: 2005

REACTIONS (1)
  - Cardiac arrest [None]
